FAERS Safety Report 5578987-3 (Version None)
Quarter: 2008Q1

REPORT INFORMATION
  Report Type: 
  Country: None (occurrence: None)
  Receive Date: 20080102
  Receipt Date: 20071220
  Transmission Date: 20080703
  Serious: Yes (Other)
  Sender: FDA-Public Use
  Company Number: US-BAYER-200714230BCC

PATIENT
  Age: 67 Year
  Sex: Male
  Weight: 95 kg

DRUGS (5)
  1. ASPIRIN [Suspect]
     Indication: ISCHAEMIC HEART DISEASE PROPHYLAXIS
     Route: 048
     Dates: start: 20060101
  2. ASPIRIN [Suspect]
     Route: 048
     Dates: start: 20060101
  3. GLUCOPHAGE [Concomitant]
  4. DIAVAN [Concomitant]
  5. ISOSORBIDE DINITRATE [Concomitant]

REACTIONS (1)
  - HYPOACUSIS [None]
